FAERS Safety Report 18545946 (Version 2)
Quarter: 2020Q4

REPORT INFORMATION
  Report Type: Report from Study
  Country: IT (occurrence: IT)
  Receive Date: 20201125
  Receipt Date: 20201204
  Transmission Date: 20210114
  Serious: Yes (Other)
  Sender: FDA-Public Use
  Company Number: NVSC2020IT311600

PATIENT
  Age: 43 Year
  Sex: Female

DRUGS (4)
  1. EUTIROX [Concomitant]
     Active Substance: LEVOTHYROXINE SODIUM
     Indication: PRODUCT USED FOR UNKNOWN INDICATION
     Dosage: (125 )(1 TABLET PER DAY)
     Route: 065
  2. TRAMETINIB [Suspect]
     Active Substance: TRAMETINIB
     Indication: MALIGNANT MELANOMA STAGE III
     Dosage: 2 MG, QD
     Route: 048
     Dates: start: 20190429, end: 20190924
  3. DABRAFENIB [Suspect]
     Active Substance: DABRAFENIB
     Indication: MALIGNANT MELANOMA STAGE III
     Dosage: 75 MG, QID
     Route: 048
     Dates: start: 20190429, end: 20190924
  4. DOSTINEX [Concomitant]
     Active Substance: CABERGOLINE
     Indication: PITUITARY TUMOUR BENIGN
     Dosage: 1/2 TABLET PER WEEK
     Route: 065

REACTIONS (4)
  - Ovarian cyst [Unknown]
  - Erythema nodosum [Recovered/Resolved]
  - Biliary cyst [Unknown]
  - Haemangioma [Unknown]

NARRATIVE: CASE EVENT DATE: 20190703
